FAERS Safety Report 11653228 (Version 1)
Quarter: 2015Q4

REPORT INFORMATION
  Report Type: Spontaneous
  Country: US (occurrence: US)
  Receive Date: 20151022
  Receipt Date: 20151022
  Transmission Date: 20160304
  Serious: No
  Sender: FDA-Public Use
  Company Number: US-TAKEDA-2015TUS014542

PATIENT
  Age: 33 Year
  Sex: Female
  Weight: 125.17 kg

DRUGS (3)
  1. CONTRAVE [Suspect]
     Active Substance: BUPROPION HYDROCHLORIDE\NALTREXONE HYDROCHLORIDE
     Indication: OBESITY
     Dosage: 8/90 MG, QD
     Route: 048
     Dates: start: 20151011
  2. FUROSEMIDE. [Concomitant]
     Active Substance: FUROSEMIDE
     Indication: DIASTOLIC DYSFUNCTION
     Dosage: 40 MG, QD
     Route: 048
     Dates: end: 201510
  3. FUROSEMIDE. [Concomitant]
     Active Substance: FUROSEMIDE
     Indication: FLUID RETENTION

REACTIONS (8)
  - Skin burning sensation [Recovering/Resolving]
  - Paraesthesia [Unknown]
  - Dry mouth [Recovering/Resolving]
  - Mental impairment [Recovering/Resolving]
  - Insomnia [Recovering/Resolving]
  - Flushing [Recovering/Resolving]
  - Fatigue [Recovering/Resolving]
  - Vision blurred [Recovering/Resolving]

NARRATIVE: CASE EVENT DATE: 201510
